FAERS Safety Report 23943110 (Version 1)
Quarter: 2024Q2

REPORT INFORMATION
  Report Type: Spontaneous
  Country: HR (occurrence: HR)
  Receive Date: 20240605
  Receipt Date: 20240605
  Transmission Date: 20240716
  Serious: Yes (Other)
  Sender: FDA-Public Use
  Company Number: HR-Merck Healthcare KGaA-2024029298

PATIENT
  Sex: Male

DRUGS (4)
  1. ERBITUX [Suspect]
     Active Substance: CETUXIMAB
     Indication: Rectosigmoid cancer stage III
     Dosage: UNK UNK, UNKNOWN
     Route: 065
     Dates: start: 202306
  2. FLUOROURACIL [Suspect]
     Active Substance: FLUOROURACIL
     Indication: Rectosigmoid cancer stage III
     Dosage: UNK UNK, UNKNOWN
     Route: 065
     Dates: start: 202306
  3. LEUCOVORIN CALCIUM [Suspect]
     Active Substance: LEUCOVORIN CALCIUM
     Indication: Rectosigmoid cancer stage III
     Dosage: UNK UNK, UNKNOWN
     Route: 065
     Dates: start: 202306
  4. IRINOTECAN [Suspect]
     Active Substance: IRINOTECAN
     Indication: Rectosigmoid cancer stage III
     Dosage: UNK UNK, UNKNOWN
     Route: 065
     Dates: start: 202306

REACTIONS (1)
  - Febrile neutropenia [Unknown]
